FAERS Safety Report 11480621 (Version 2)
Quarter: 2015Q4

REPORT INFORMATION
  Report Type: Report from Study
  Country: JP (occurrence: JP)
  Receive Date: 20150909
  Receipt Date: 20151105
  Transmission Date: 20160304
  Serious: Yes (Other)
  Sender: FDA-Public Use
  Company Number: JP-ASTELLAS-2011JP006888

PATIENT
  Age: 51 Year
  Sex: Female

DRUGS (61)
  1. PREDNISOLONE. [Concomitant]
     Active Substance: PREDNISOLONE
     Indication: LUPUS NEPHRITIS
     Route: 048
     Dates: end: 20110609
  2. PREDNISOLONE. [Concomitant]
     Active Substance: PREDNISOLONE
     Route: 048
     Dates: start: 20110610, end: 20121213
  3. NORVASC [Concomitant]
     Active Substance: AMLODIPINE BESYLATE
     Indication: PRODUCT USED FOR UNKNOWN INDICATION
     Route: 048
  4. WARFARIN [Concomitant]
     Active Substance: WARFARIN
     Indication: LUPUS NEPHRITIS
     Route: 048
     Dates: end: 20120509
  5. WARFARIN [Concomitant]
     Active Substance: WARFARIN
     Route: 048
  6. NOVORAPID [Concomitant]
     Active Substance: INSULIN ASPART
     Indication: PRODUCT USED FOR UNKNOWN INDICATION
     Dosage: UNK UNK, UNKNOWN FREQ.
     Route: 058
     Dates: end: 20100401
  7. ALLEGRA [Concomitant]
     Active Substance: FEXOFENADINE HYDROCHLORIDE
     Route: 048
     Dates: start: 20130723
  8. HUSTAZOL                           /00398402/ [Concomitant]
     Indication: PHARYNGITIS
     Route: 048
     Dates: start: 20131205, end: 20131211
  9. HUSTAZOL                           /00398402/ [Concomitant]
     Route: 048
     Dates: start: 20140508, end: 20140514
  10. PL [Concomitant]
     Active Substance: ACETAMINOPHEN\CAFFEINE\PROMETHAZINE\SALICYLAMIDE
     Route: 048
     Dates: start: 20140410, end: 20140416
  11. CARDENALIN [Concomitant]
     Active Substance: DOXAZOSIN MESYLATE
     Indication: PRODUCT USED FOR UNKNOWN INDICATION
     Route: 048
  12. DEPAS [Concomitant]
     Active Substance: ETIZOLAM
     Indication: INSOMNIA
     Dosage: 0.5 MG, ONCE DAILY
     Route: 048
     Dates: start: 20110203
  13. ALLEGRA [Concomitant]
     Active Substance: FEXOFENADINE HYDROCHLORIDE
     Indication: URTICARIA
     Route: 048
     Dates: start: 20111006, end: 20121118
  14. BUSCOPAN [Concomitant]
     Active Substance: BUTYLSCOPOLAMINE BROMIDE
     Route: 048
     Dates: start: 20141020, end: 20141102
  15. METHYCOBAL [Concomitant]
     Active Substance: METHYLCOBALAMIN
     Indication: PRODUCT USED FOR UNKNOWN INDICATION
     Route: 048
  16. NAUZELIN [Concomitant]
     Active Substance: DOMPERIDONE
     Indication: CHOLECYSTITIS CHRONIC
     Route: 048
     Dates: start: 20140127, end: 20140210
  17. CLARITH [Concomitant]
     Active Substance: CLARITHROMYCIN
     Indication: PHARYNGITIS
     Route: 048
     Dates: start: 20131205, end: 20131211
  18. SP TROCHE [Concomitant]
     Active Substance: DEQUALINIUM CHLORIDE
     Indication: UPPER RESPIRATORY TRACT INFLAMMATION
     Route: 048
     Dates: start: 20131205, end: 20131211
  19. MERCAZOLE [Concomitant]
     Active Substance: CARBIMAZOLE
     Indication: PRODUCT USED FOR UNKNOWN INDICATION
     Route: 048
  20. FOSAMAC [Concomitant]
     Active Substance: ALENDRONATE SODIUM
     Indication: PROPHYLAXIS
     Route: 048
     Dates: start: 20100107
  21. MAGMITT [Concomitant]
     Active Substance: MAGNESIUM OXIDE
     Indication: CONSTIPATION
     Route: 048
     Dates: start: 20101202, end: 20110202
  22. URSO [Concomitant]
     Active Substance: URSODIOL
     Indication: PRODUCT USED FOR UNKNOWN INDICATION
     Route: 048
     Dates: start: 20110609
  23. FOSAMAC [Concomitant]
     Active Substance: ALENDRONATE SODIUM
     Indication: PROPHYLAXIS
     Route: 048
  24. CHOLEBINE [Concomitant]
     Active Substance: COLESTILAN CHLORIDE
     Indication: PRODUCT USED FOR UNKNOWN INDICATION
     Route: 048
  25. DIOVAN [Concomitant]
     Active Substance: VALSARTAN
     Indication: PRODUCT USED FOR UNKNOWN INDICATION
     Route: 048
  26. HUSTAZOL                           /00398402/ [Concomitant]
     Indication: BRONCHITIS
     Route: 048
     Dates: start: 20140109, end: 20140115
  27. CLARITH [Concomitant]
     Active Substance: CLARITHROMYCIN
     Indication: BRONCHITIS
     Route: 048
     Dates: start: 20140109, end: 20140115
  28. CRAVIT [Concomitant]
     Active Substance: LEVOFLOXACIN
     Indication: CHOLECYSTITIS CHRONIC
     Route: 048
     Dates: start: 20130109, end: 20130113
  29. GASTER [Concomitant]
     Active Substance: FAMOTIDINE
     Indication: PROPHYLAXIS
     Route: 048
     Dates: end: 20110831
  30. ALLEGRA [Concomitant]
     Active Substance: FEXOFENADINE HYDROCHLORIDE
     Indication: PROPHYLAXIS
     Route: 048
     Dates: start: 20130513, end: 20150722
  31. BUSCOPAN [Concomitant]
     Active Substance: BUTYLSCOPOLAMINE BROMIDE
     Indication: CHOLELITHIASIS
     Route: 048
     Dates: start: 20111208
  32. CLARITH [Concomitant]
     Active Substance: CLARITHROMYCIN
     Route: 048
     Dates: start: 20140410, end: 20140416
  33. CYMBALTA [Concomitant]
     Active Substance: DULOXETINE HYDROCHLORIDE
     Indication: PAIN IN EXTREMITY
     Route: 048
     Dates: start: 20140612, end: 20141105
  34. TACROLIMUS. [Suspect]
     Active Substance: TACROLIMUS
     Indication: LUPUS NEPHRITIS
     Route: 048
     Dates: start: 20100107
  35. PREDNISOLONE. [Concomitant]
     Active Substance: PREDNISOLONE
     Route: 048
     Dates: start: 20121214, end: 20130206
  36. PREDNISOLONE. [Concomitant]
     Active Substance: PREDNISOLONE
     Route: 048
     Dates: start: 20130704
  37. LOXONIN [Concomitant]
     Active Substance: LOXOPROFEN SODIUM
     Indication: HEADACHE
     Route: 048
     Dates: start: 20110106
  38. BANAN [Concomitant]
     Active Substance: CEFPODOXIME PROXETIL
     Indication: BRONCHITIS
  39. NAUZELIN [Concomitant]
     Active Substance: DOMPERIDONE
     Route: 048
     Dates: start: 20141020, end: 20141102
  40. PL [Concomitant]
     Active Substance: ACETAMINOPHEN\CAFFEINE\PROMETHAZINE\SALICYLAMIDE
     Indication: UPPER RESPIRATORY TRACT INFLAMMATION
     Route: 048
     Dates: start: 20131205, end: 20131211
  41. CLARITH [Concomitant]
     Active Substance: CLARITHROMYCIN
     Indication: UPPER RESPIRATORY TRACT INFLAMMATION
     Route: 048
     Dates: start: 20111006, end: 20111016
  42. CLARITH [Concomitant]
     Active Substance: CLARITHROMYCIN
     Route: 048
     Dates: start: 20140807, end: 20140813
  43. SP TROCHE [Concomitant]
     Active Substance: DEQUALINIUM CHLORIDE
     Route: 048
     Dates: start: 20140109, end: 20140115
  44. PREDNISOLONE. [Concomitant]
     Active Substance: PREDNISOLONE
     Route: 048
     Dates: start: 20130207, end: 20130703
  45. TALION [Concomitant]
     Active Substance: BEPOTASTINE
     Indication: URTICARIA
     Route: 048
     Dates: start: 20100401, end: 20110803
  46. PARIET [Concomitant]
     Active Substance: RABEPRAZOLE SODIUM
     Indication: PROPHYLAXIS
     Route: 048
     Dates: start: 20110609, end: 20120404
  47. BUSCOPAN [Concomitant]
     Active Substance: BUTYLSCOPOLAMINE BROMIDE
     Indication: CHOLECYSTITIS CHRONIC
     Route: 048
     Dates: start: 20130109, end: 20140210
  48. PRIMPERAN [Concomitant]
     Active Substance: METOCLOPRAMIDE HYDROCHLORIDE
     Indication: PRODUCT USED FOR UNKNOWN INDICATION
     Route: 048
     Dates: start: 20120105, end: 20130307
  49. CLARITH [Concomitant]
     Active Substance: CLARITHROMYCIN
     Route: 048
     Dates: start: 20140714, end: 20140720
  50. SP TROCHE [Concomitant]
     Active Substance: DEQUALINIUM CHLORIDE
     Route: 048
     Dates: start: 20140410, end: 20140416
  51. MUCOSTA [Concomitant]
     Active Substance: REBAMIPIDE
     Indication: PROPHYLAXIS
     Route: 048
  52. GLUFAST [Concomitant]
     Active Substance: MITIGLINIDE
     Indication: PRODUCT USED FOR UNKNOWN INDICATION
     Route: 048
     Dates: end: 20100630
  53. PARIET [Concomitant]
     Active Substance: RABEPRAZOLE SODIUM
     Route: 048
  54. HUSTAZOL                           /00398402/ [Concomitant]
     Indication: UPPER RESPIRATORY TRACT INFLAMMATION
     Route: 048
     Dates: start: 20110922, end: 20111214
  55. CLARITH [Concomitant]
     Active Substance: CLARITHROMYCIN
     Route: 048
     Dates: start: 20140612, end: 20140618
  56. BAYASPIRIN [Concomitant]
     Active Substance: ASPIRIN
     Indication: PRODUCT USED FOR UNKNOWN INDICATION
     Route: 048
  57. BANAN [Concomitant]
     Active Substance: CEFPODOXIME PROXETIL
     Indication: PHARYNGITIS
     Route: 048
     Dates: start: 20110106, end: 20110928
  58. NAUZELIN [Concomitant]
     Active Substance: DOMPERIDONE
     Indication: CHOLELITHIASIS
     Dosage: UNK, UNKNOWN FREQ.
     Route: 048
     Dates: start: 201301
  59. HUSTAZOL                           /00398402/ [Concomitant]
     Indication: COUGH
     Route: 048
     Dates: start: 20140410, end: 20140416
  60. PL [Concomitant]
     Active Substance: ACETAMINOPHEN\CAFFEINE\PROMETHAZINE\SALICYLAMIDE
     Route: 048
     Dates: start: 20140109, end: 20140115
  61. CRAVIT [Concomitant]
     Active Substance: LEVOFLOXACIN
     Indication: CHOLECYSTITIS
     Route: 048
     Dates: start: 20130103, end: 20130107

REACTIONS (13)
  - Cough [Recovered/Resolved]
  - Pain in extremity [Not Recovered/Not Resolved]
  - Cholelithiasis [Not Recovered/Not Resolved]
  - Headache [Not Recovered/Not Resolved]
  - Cholecystitis chronic [Recovered/Resolved]
  - Bronchitis [Recovered/Resolved]
  - Pharyngitis [Recovered/Resolved]
  - Hepatic steatosis [Not Recovered/Not Resolved]
  - Urticaria [Recovering/Resolving]
  - Upper respiratory tract inflammation [Recovering/Resolving]
  - Insomnia [Not Recovered/Not Resolved]
  - Constipation [Recovering/Resolving]
  - Cholecystitis infective [Recovering/Resolving]

NARRATIVE: CASE EVENT DATE: 20100301
